FAERS Safety Report 4727074-2 (Version None)
Quarter: 2005Q3

REPORT INFORMATION
  Report Type: 
  Country: None (occurrence: None)
  Receive Date: 20050726
  Receipt Date: 20050726
  Transmission Date: 20060218
  Serious: Yes (Congenital Anomaly)
  Sender: FDA-Public Use
  Company Number: None

PATIENT
  Age: 58 Year
  Sex: Female
  Weight: 99.7913 kg

DRUGS (1)
  1. KETOCONAZOLE [Suspect]
     Indication: CANDIDIASIS
     Dosage: 1 TABLET BY MOUTH ORAL
     Route: 048
     Dates: start: 20050715, end: 20050720

REACTIONS (2)
  - DEAFNESS TRANSITORY [None]
  - TINNITUS [None]
